FAERS Safety Report 6959563-4 (Version None)
Quarter: 2010Q3

REPORT INFORMATION
  Report Type: 
  Country: None (occurrence: None)
  Receive Date: 20100830
  Receipt Date: 20100823
  Transmission Date: 20110219
  Serious: Yes (Death, Hospitalization, Other)
  Sender: FDA-Public Use
  Company Number: 20109084

PATIENT
  Age: 64 Year
  Sex: Male

DRUGS (1)
  1. LIORESAL [Suspect]
     Indication: MUSCLE SPASTICITY
     Dosage: 1800 MCG, DAILY, INTRATHECAL
     Route: 037

REACTIONS (6)
  - CARDIAC ARREST [None]
  - CARDIAC FAILURE [None]
  - CONDITION AGGRAVATED [None]
  - DRUG INEFFECTIVE [None]
  - MUSCLE SPASTICITY [None]
  - PULMONARY EMBOLISM [None]
